FAERS Safety Report 7704651-8 (Version None)
Quarter: 2011Q3

REPORT INFORMATION
  Report Type: 
  Country: None (occurrence: None)
  Receive Date: 20110823
  Receipt Date: 20110805
  Transmission Date: 20111222
  Serious: Yes (Hospitalization)
  Sender: FDA-Public Use
  Company Number: NL-GLAXOSMITHKLINE-B0741461A

PATIENT
  Sex: Female

DRUGS (13)
  1. UNKNOWN [Concomitant]
  2. ACETAMINOPHEN [Concomitant]
     Route: 065
     Dates: start: 20110301
  3. RITUXIMAB [Suspect]
     Indication: B-CELL LYMPHOMA
     Route: 065
     Dates: start: 20110406, end: 20110414
  4. MOVICOLON [Concomitant]
     Route: 065
     Dates: start: 20110301
  5. CHLORAMBUCIL [Suspect]
     Indication: B-CELL LYMPHOMA
     Dosage: 16MG PER DAY
     Route: 065
     Dates: start: 20110406, end: 20110414
  6. SINEMET [Concomitant]
     Route: 065
     Dates: start: 20100401
  7. AMANTADINE HCL [Concomitant]
     Route: 065
     Dates: start: 20110401
  8. BUMETANIDE [Concomitant]
     Route: 065
     Dates: start: 20110301
  9. AMLODIPINE [Concomitant]
     Route: 065
     Dates: start: 20070101
  10. PERINDOPRIL [Concomitant]
     Route: 065
     Dates: start: 20110301
  11. RABEPRAZOLE SODIUM [Concomitant]
     Route: 065
     Dates: start: 20110301
  12. SPIRONOLACTONE [Concomitant]
     Route: 065
     Dates: start: 20110301
  13. CARVEDILOL [Concomitant]
     Route: 065

REACTIONS (5)
  - VOMITING [None]
  - CEREBELLAR ATAXIA [None]
  - NAUSEA [None]
  - EXTENSOR PLANTAR RESPONSE [None]
  - MYOCLONUS [None]
